FAERS Safety Report 24962294 (Version 2)
Quarter: 2025Q1

REPORT INFORMATION
  Report Type: Spontaneous
  Country: BR (occurrence: BR)
  Receive Date: 20250212
  Receipt Date: 20250318
  Transmission Date: 20250408
  Serious: Yes (Hospitalization)
  Sender: IPSEN BIOPHARMACEUTICALS, INC.
  Company Number: BR-IPSEN Group, Research and Development-2025-03159

PATIENT
  Sex: Female

DRUGS (1)
  1. DYSPORT [Suspect]
     Active Substance: ABOBOTULINUMTOXINA
     Indication: Muscle spasticity
     Route: 065

REACTIONS (6)
  - Hypotonia [Unknown]
  - Muscular weakness [Unknown]
  - Vision blurred [Unknown]
  - Diplopia [Unknown]
  - Dysphagia [Unknown]
  - Dysarthria [Unknown]
